FAERS Safety Report 24335146 (Version 3)
Quarter: 2024Q4

REPORT INFORMATION
  Report Type: Spontaneous
  Country: DE (occurrence: DE)
  Receive Date: 20240918
  Receipt Date: 20241015
  Transmission Date: 20250115
  Serious: Yes (Other)
  Sender: NOVARTIS
  Company Number: DE-002147023-NVSC2024DE184156

PATIENT
  Sex: Female
  Weight: 70 kg

DRUGS (1)
  1. KESIMPTA [Suspect]
     Active Substance: OFATUMUMAB
     Indication: Multiple sclerosis
     Dosage: 20 MG, QMO
     Route: 058
     Dates: start: 20220314, end: 20240912

REACTIONS (6)
  - Pneumonitis [Unknown]
  - Multiple sclerosis [Unknown]
  - Cough [Unknown]
  - Inflammation [Unknown]
  - C-reactive protein increased [Not Recovered/Not Resolved]
  - Gamma-glutamyltransferase increased [Unknown]

NARRATIVE: CASE EVENT DATE: 20230926
